FAERS Safety Report 13500700 (Version 8)
Quarter: 2018Q1

REPORT INFORMATION
  Report Type: Report from Study
  Country: US (occurrence: US)
  Receive Date: 20170501
  Receipt Date: 20180214
  Transmission Date: 20180508
  Serious: Yes (Hospitalization)
  Sender: FDA-Public Use
  Company Number: US-ACTELION-A-US2017-149701

PATIENT
  Age: 73 Year
  Sex: Male
  Weight: 74.83 kg

DRUGS (5)
  1. COUMADIN [Concomitant]
     Active Substance: WARFARIN SODIUM
  2. AMLODIPINE [Concomitant]
     Active Substance: AMLODIPINE BESYLATE
  3. BABY ASPIRIN [Suspect]
     Active Substance: ASPIRIN
     Indication: PRODUCT USED FOR UNKNOWN INDICATION
     Route: 048
  4. VELETRI [Suspect]
     Active Substance: EPOPROSTENOL
     Dosage: UNK
     Route: 042
  5. VELETRI [Suspect]
     Active Substance: EPOPROSTENOL
     Indication: PULMONARY ARTERIAL HYPERTENSION
     Dosage: 18 NG/KG, PER MIN
     Route: 042

REACTIONS (15)
  - Pneumonia [Unknown]
  - Swelling [Unknown]
  - Condition aggravated [Unknown]
  - Influenza [Unknown]
  - Pain in jaw [Not Recovered/Not Resolved]
  - Pain in extremity [Not Recovered/Not Resolved]
  - Cardiac murmur [Unknown]
  - Myalgia [Unknown]
  - Contusion [Unknown]
  - Limb injury [Unknown]
  - Pulmonary pain [Unknown]
  - Heart valve replacement [Unknown]
  - Nasal dryness [Unknown]
  - Haemorrhage [Unknown]
  - Epistaxis [Unknown]
